FAERS Safety Report 4629192-6 (Version None)
Quarter: 2005Q2

REPORT INFORMATION
  Report Type: 
  Country: None (occurrence: None)
  Receive Date: 20050407
  Receipt Date: 20041215
  Transmission Date: 20051028
  Serious: Yes (Hospitalization)
  Sender: FDA-Public Use
  Company Number: GBWYE237326NOV04

PATIENT
  Sex: Male
  Weight: 80.5 kg

DRUGS (5)
  1. ENBREL [Suspect]
     Indication: RHEUMATOID ARTHRITIS
     Route: 058
     Dates: start: 20000104
  2. UNSPECIFIED MEDICATION [Suspect]
     Route: 048
     Dates: start: 20041126, end: 20041126
  3. PREDNISOLONE [Concomitant]
     Dates: start: 19881005
  4. VOLTAROL [Concomitant]
     Dates: start: 19950720
  5. LOSEC [Concomitant]
     Route: 048
     Dates: start: 19961107

REACTIONS (9)
  - CELLULITIS [None]
  - DYSPNOEA [None]
  - EPIGLOTTITIS [None]
  - IMPLANT SITE INFECTION [None]
  - PRODUCTIVE COUGH [None]
  - SPEECH DISORDER [None]
  - STAPHYLOCOCCAL INFECTION [None]
  - STRIDOR [None]
  - WOUND INFECTION STAPHYLOCOCCAL [None]
